FAERS Safety Report 13793655 (Version 2)
Quarter: 2017Q3

REPORT INFORMATION
  Report Type: Report from Study
  Country: US (occurrence: US)
  Receive Date: 20170726
  Receipt Date: 20170804
  Transmission Date: 20171127
  Serious: Yes (Other)
  Sender: FDA-Public Use
  Company Number: US-JAZZ-2017-US-009053

PATIENT
  Sex: Female
  Weight: 58.5 kg

DRUGS (21)
  1. NORCO [Concomitant]
     Active Substance: ACETAMINOPHEN\HYDROCODONE BITARTRATE
  2. WELLBUTRIN [Concomitant]
     Active Substance: BUPROPION HYDROCHLORIDE
  3. METHOTREXATE. [Concomitant]
     Active Substance: METHOTREXATE
  4. XYREM [Suspect]
     Active Substance: SODIUM OXYBATE
     Dosage: DOSE ADJUSTMENT
     Route: 048
     Dates: start: 200712, end: 2009
  5. CATAFLAM                           /00372302/ [Concomitant]
     Active Substance: DICLOFENAC POTASSIUM
  6. MVI                                /01825701/ [Concomitant]
     Active Substance: VITAMINS
  7. PHENTERMINE. [Concomitant]
     Active Substance: PHENTERMINE
  8. VALIUM [Concomitant]
     Active Substance: DIAZEPAM
  9. FEMCON FE [Concomitant]
     Active Substance: ETHINYL ESTRADIOL\NORETHINDRONE ACETATE
  10. XYREM [Suspect]
     Active Substance: SODIUM OXYBATE
     Indication: NARCOLEPSY
     Dosage: 2.5 G, BID
     Route: 048
     Dates: start: 200705, end: 200712
  11. ETODOLAC. [Concomitant]
     Active Substance: ETODOLAC
  12. PREDNISONE. [Concomitant]
     Active Substance: PREDNISONE
  13. LYSINE [Concomitant]
     Active Substance: LYSINE
  14. ARMOUR THYROID [Concomitant]
     Active Substance: THYROID, PORCINE
  15. FOLIC ACID. [Concomitant]
     Active Substance: FOLIC ACID
  16. ORACEA [Concomitant]
     Active Substance: DOXYCYCLINE
  17. LEVOXYL [Concomitant]
     Active Substance: LEVOTHYROXINE SODIUM
  18. XYREM [Suspect]
     Active Substance: SODIUM OXYBATE
     Dosage: 3.75 G, BID
     Route: 048
     Dates: start: 200909
  19. LEVOTHYROXINE. [Concomitant]
     Active Substance: LEVOTHYROXINE
  20. PROVIGIL [Concomitant]
     Active Substance: MODAFINIL
  21. VITAMIN C [Concomitant]
     Active Substance: ASCORBIC ACID

REACTIONS (6)
  - Gastrointestinal hypomotility [Unknown]
  - Psoriasis [Unknown]
  - Sinus operation [Recovered/Resolved]
  - Fatigue [Not Recovered/Not Resolved]
  - Periodic limb movement disorder [Unknown]
  - Drug ineffective [Unknown]

NARRATIVE: CASE EVENT DATE: 2016
